FAERS Safety Report 10087093 (Version 1)
Quarter: 2014Q2

REPORT INFORMATION
  Report Type: Spontaneous
  Country: US (occurrence: US)
  Receive Date: 20140418
  Receipt Date: 20140418
  Transmission Date: 20141212
  Serious: No
  Sender: FDA-Public Use
  Company Number: US-UPSHER-SMITH LABORATORIES, INC.-13003645

PATIENT
  Sex: Female

DRUGS (5)
  1. PRADAXA [Concomitant]
     Dosage: UNK
  2. SOTALOL HYDROCHLORIDE [Concomitant]
     Dosage: UNK
  3. GLIPIZIDE [Concomitant]
     Dosage: UNK
  4. PREVALITE [Suspect]
     Indication: DIARRHOEA
     Dosage: 4.5 G, QD
     Route: 048
     Dates: start: 201304
  5. LISINOPRIL [Concomitant]
     Dosage: UNK

REACTIONS (3)
  - Flatulence [Recovered/Resolved]
  - Abdominal pain [Recovered/Resolved]
  - Drug ineffective for unapproved indication [Recovered/Resolved]
